FAERS Safety Report 7816527-6 (Version None)
Quarter: 2011Q4

REPORT INFORMATION
  Report Type: 
  Country: None (occurrence: None)
  Receive Date: 20111017
  Receipt Date: 20111012
  Transmission Date: 20120403
  Serious: Yes (Other)
  Sender: FDA-Public Use
  Company Number: US-PFIZER INC-2011244133

PATIENT
  Sex: Male

DRUGS (1)
  1. PRISTIQ [Suspect]
     Dosage: UNK
     Dates: end: 20111012

REACTIONS (5)
  - HEADACHE [None]
  - ABNORMAL BEHAVIOUR [None]
  - CRYING [None]
  - THINKING ABNORMAL [None]
  - DEPRESSION [None]
